FAERS Safety Report 13631656 (Version 3)
Quarter: 2017Q4

REPORT INFORMATION
  Report Type: Report from Study
  Country: US (occurrence: US)
  Receive Date: 20170608
  Receipt Date: 20171030
  Transmission Date: 20180320
  Serious: Yes (Death, Hospitalization)
  Sender: FDA-Public Use
  Company Number: US-ACTELION-A-US2017-154714

PATIENT
  Age: 66 Year
  Sex: Female

DRUGS (6)
  1. OPSUMIT [Suspect]
     Active Substance: MACITENTAN
     Dosage: 10 MG, UNK
     Route: 048
     Dates: start: 20170927
  2. REVATIO [Concomitant]
     Active Substance: SILDENAFIL CITRATE
  3. MIDODRINE [Concomitant]
     Active Substance: MIDODRINE
  4. OPSUMIT [Suspect]
     Active Substance: MACITENTAN
     Indication: HEPATIC CIRRHOSIS
     Dosage: 10 MG, UNK
     Route: 048
     Dates: start: 20170309, end: 2017
  5. METORPOLOLTARTRAAT A [Concomitant]
  6. ELIQUIS [Concomitant]
     Active Substance: APIXABAN

REACTIONS (4)
  - Renal disorder [Recovering/Resolving]
  - Renal failure [Recovered/Resolved]
  - Death [Fatal]
  - Contrast media reaction [Recovering/Resolving]
